FAERS Safety Report 9803595 (Version 2)
Quarter: 2014Q1

REPORT INFORMATION
  Report Type: Spontaneous
  Country: GB (occurrence: GB)
  Receive Date: 20140108
  Receipt Date: 20140108
  Transmission Date: 20141002
  Serious: Yes (Hospitalization)
  Sender: FDA-Public Use
  Company Number: GB-JNJFOC-20131002297

PATIENT
  Age: 45 Year
  Sex: Female
  Weight: 63.2 kg

DRUGS (4)
  1. INFLIXIMAB, RECOMBINANT [Suspect]
     Indication: CROHN^S DISEASE
     Dosage: 2ND INFUSION
     Route: 042
     Dates: start: 20130813
  2. INFLIXIMAB, RECOMBINANT [Suspect]
     Indication: CROHN^S DISEASE
     Dosage: 3RD INFUSION
     Route: 042
     Dates: start: 20130910
  3. INFLIXIMAB, RECOMBINANT [Suspect]
     Indication: CROHN^S DISEASE
     Dosage: 1ST INFUSION
     Route: 042
     Dates: start: 20130801
  4. CORTICOSTEROID [Suspect]
     Indication: RASH
     Route: 048
     Dates: start: 2013

REACTIONS (8)
  - Pneumonitis [Recovering/Resolving]
  - Arthropathy [Unknown]
  - Mouth ulceration [Unknown]
  - Rash pruritic [Not Recovered/Not Resolved]
  - Cough [Recovering/Resolving]
  - Infusion related reaction [Not Recovered/Not Resolved]
  - Dyspnoea [Recovered/Resolved]
  - Unevaluable event [Recovering/Resolving]
